FAERS Safety Report 5757959-X (Version None)
Quarter: 2008Q2

REPORT INFORMATION
  Report Type: 
  Country: None (occurrence: None)
  Receive Date: 20080602
  Receipt Date: 20080602
  Transmission Date: 20081010
  Serious: Yes (Life-Threatening, Hospitalization, Other)
  Sender: FDA-Public Use
  Company Number: None

PATIENT
  Age: 44 Year
  Sex: Female
  Weight: 63.5036 kg

DRUGS (6)
  1. IXEMPRA  UNKNOWN  BRISTOL MYERS SQUIBB [Suspect]
     Indication: BREAST CANCER METASTATIC
     Dosage: CALCULATED BY ONCOLOGIST  ONCE/3 WEEKS IV DRIP
     Route: 041
     Dates: start: 20080506, end: 20080506
  2. PAROXETINE HCL [Concomitant]
  3. TEMAZEPAM [Concomitant]
  4. OXYCONTIN [Concomitant]
  5. OXYCODONE HCL [Concomitant]
  6. LORATADINE [Concomitant]

REACTIONS (26)
  - ACTIVITIES OF DAILY LIVING IMPAIRED [None]
  - ARTHRALGIA [None]
  - BEDRIDDEN [None]
  - CHEST PAIN [None]
  - CONTUSION [None]
  - DEHYDRATION [None]
  - DRY SKIN [None]
  - DYSPNOEA [None]
  - FEELING ABNORMAL [None]
  - FLUID INTAKE REDUCED [None]
  - FURUNCLE [None]
  - HAEMORRHAGE [None]
  - HYPERAESTHESIA [None]
  - JOINT SWELLING [None]
  - MUCOUS MEMBRANE DISORDER [None]
  - MUSCULOSKELETAL CHEST PAIN [None]
  - ORAL INTAKE REDUCED [None]
  - PAIN [None]
  - PAIN IN EXTREMITY [None]
  - PURPURA [None]
  - RASH PRURITIC [None]
  - SCAR [None]
  - SKIN ATROPHY [None]
  - SKIN EXFOLIATION [None]
  - SKIN HAEMORRHAGE [None]
  - WEIGHT DECREASED [None]
